FAERS Safety Report 8745641 (Version 2)
Quarter: 2013Q2

REPORT INFORMATION
  Report Type: Spontaneous
  Country: US (occurrence: US)
  Receive Date: 20120826
  Receipt Date: 20130405
  Transmission Date: 20140414
  Serious: No
  Sender: FDA-Public Use
  Company Number: US-009507513-1207USA002522

PATIENT
  Sex: Female

DRUGS (1)
  1. DR. SCHOLLS CORN REMOVERS [Suspect]
     Indication: HYPERKERATOSIS
     Dosage: UNK, UNKNOWN
     Route: 061

REACTIONS (2)
  - Skin exfoliation [Unknown]
  - Pain [Not Recovered/Not Resolved]
